FAERS Safety Report 8879997 (Version 4)
Quarter: 2013Q1

REPORT INFORMATION
  Report Type: Spontaneous
  Country: BR (occurrence: BR)
  Receive Date: 20121101
  Receipt Date: 20130201
  Transmission Date: 20140127
  Serious: Yes (Life-Threatening, Other)
  Sender: FDA-Public Use
  Company Number: PHHY2012BR093930

PATIENT
  Age: 59 Year
  Sex: Female
  Weight: 90 kg

DRUGS (4)
  1. RASILEZ [Suspect]
     Indication: PROTEINURIA
     Dosage: 300 MG, DAILY
     Route: 048
     Dates: start: 201208
  2. RASILEZ [Suspect]
     Dosage: 1 DF (300 MG)
     Dates: start: 20121015
  3. RASILEZ [Suspect]
     Dosage: 1 DF (300 MG)
     Dates: start: 20121016
  4. HUMAN INSULIN [Concomitant]
     Indication: DIABETES MELLITUS
     Dosage: 20 U, QD

REACTIONS (18)
  - Skin discolouration [Recovered/Resolved]
  - Fall [Unknown]
  - Anuria [Recovered/Resolved]
  - Dyspnoea [Not Recovered/Not Resolved]
  - Presyncope [Recovered/Resolved]
  - Feeling abnormal [Not Recovered/Not Resolved]
  - Sensory loss [Not Recovered/Not Resolved]
  - Urine abnormality [Not Recovered/Not Resolved]
  - Retching [Unknown]
  - Swelling [Not Recovered/Not Resolved]
  - Pain [Recovered/Resolved]
  - Nail discolouration [Recovered/Resolved]
  - Tremor [Not Recovered/Not Resolved]
  - Malaise [Unknown]
  - Nausea [Not Recovered/Not Resolved]
  - Head discomfort [Not Recovered/Not Resolved]
  - Proteinuria [Not Recovered/Not Resolved]
  - Dizziness [Not Recovered/Not Resolved]
